FAERS Safety Report 23084373 (Version 1)
Quarter: 2023Q4

REPORT INFORMATION
  Report Type: Spontaneous
  Country: FR (occurrence: FR)
  Receive Date: 20231019
  Receipt Date: 20231019
  Transmission Date: 20240109
  Serious: Yes (Hospitalization, Other)
  Sender: FDA-Public Use
  Company Number: None

PATIENT
  Age: 55 Year
  Sex: Male
  Weight: 80 kg

DRUGS (14)
  1. VECTIBIX [Suspect]
     Active Substance: PANITUMUMAB
     Indication: Adenocarcinoma of colon
     Dosage: 6 MILLIGRAM/KILOGRAM
     Route: 040
     Dates: start: 20230102, end: 20230213
  2. VECTIBIX [Suspect]
     Active Substance: PANITUMUMAB
     Dosage: 6 MILLIGRAM/KILOGRAM
     Route: 040
     Dates: start: 20220308, end: 20220426
  3. VECTIBIX [Suspect]
     Active Substance: PANITUMUMAB
     Dosage: 6 MILLIGRAM/KILOGRAM
     Route: 040
     Dates: start: 20220928, end: 20221109
  4. VECTIBIX [Suspect]
     Active Substance: PANITUMUMAB
     Dosage: 6 MILLIGRAM/KILOGRAM
     Route: 040
     Dates: start: 20211102, end: 20211214
  5. FLUOROURACIL [Suspect]
     Active Substance: FLUOROURACIL
     Indication: Adenocarcinoma of colon
     Dosage: 2400 MILLIGRAM/SQ. METER
     Route: 040
     Dates: start: 20220308, end: 20220426
  6. FLUOROURACIL [Suspect]
     Active Substance: FLUOROURACIL
     Dosage: 2400 MILLIGRAM/SQ. METER
     Route: 040
     Dates: start: 20200817, end: 20200928
  7. FLUOROURACIL [Suspect]
     Active Substance: FLUOROURACIL
     Dosage: 2400 MILLIGRAM/SQ. METER
     Route: 040
     Dates: start: 20220928, end: 20221109
  8. FLUOROURACIL [Suspect]
     Active Substance: FLUOROURACIL
     Dosage: 2400 MILLIGRAM/SQ. METER
     Route: 040
     Dates: start: 20230102, end: 20230213
  9. FLUOROURACIL [Suspect]
     Active Substance: FLUOROURACIL
     Dosage: 2400 MILLIGRAM/SQ. METER
     Route: 040
     Dates: start: 20211102, end: 20211214
  10. FLUOROURACIL [Suspect]
     Active Substance: FLUOROURACIL
     Dosage: 2400 MILLIGRAM/SQ. METER
     Route: 040
     Dates: start: 20210208, end: 20210517
  11. IRINOTECAN [Suspect]
     Active Substance: IRINOTECAN
     Indication: Adenocarcinoma of colon
     Dosage: 180 MILLIGRAM/SQ. METER
     Route: 040
     Dates: start: 20230102, end: 20230213
  12. IRINOTECAN [Suspect]
     Active Substance: IRINOTECAN
     Dosage: 180 MILLIGRAM/SQ. METER
     Route: 040
     Dates: start: 20220308, end: 20220426
  13. IRINOTECAN [Suspect]
     Active Substance: IRINOTECAN
     Dosage: 180 MILLIGRAM/SQ. METER
     Route: 040
     Dates: start: 20220928, end: 20221109
  14. IRINOTECAN [Suspect]
     Active Substance: IRINOTECAN
     Dosage: 180 MILLIGRAM/SQ. METER
     Route: 040
     Dates: start: 20211102, end: 20211214

REACTIONS (1)
  - Intestinal perforation [Recovered/Resolved]

NARRATIVE: CASE EVENT DATE: 20230304
